FAERS Safety Report 5809166-X (Version None)
Quarter: 2008Q3

REPORT INFORMATION
  Report Type: 
  Country: None (occurrence: None)
  Receive Date: 20080714
  Receipt Date: 20080702
  Transmission Date: 20090109
  Serious: Yes (Other)
  Sender: FDA-Public Use
  Company Number: DE-PFIZER INC-2008048033

PATIENT
  Sex: Female
  Weight: 74 kg

DRUGS (4)
  1. LYRICA [Suspect]
     Indication: NEURALGIA
     Dosage: DAILY DOSE:50MG
     Route: 048
     Dates: start: 20080531, end: 20080601
  2. LYRICA [Suspect]
     Indication: PAIN IN EXTREMITY
  3. ACETYLSALICYLIC ACID SRT [Concomitant]
  4. CHOLESTEROL- AND TRIGLYCERIDE REDUCERS [Concomitant]

REACTIONS (5)
  - ANGINA PECTORIS [None]
  - ASTHMA [None]
  - CHEST DISCOMFORT [None]
  - DYSPNOEA [None]
  - PALPITATIONS [None]
